FAERS Safety Report 7336991-9 (Version None)
Quarter: 2011Q1

REPORT INFORMATION
  Report Type: 
  Country: None (occurrence: None)
  Receive Date: 20110224
  Receipt Date: 20110210
  Transmission Date: 20110831
  Serious: Yes (Other)
  Sender: FDA-Public Use
  Company Number: 011282

PATIENT
  Sex: Female
  Weight: 72.7 kg

DRUGS (7)
  1. PROGESTERON [Concomitant]
  2. VIVELLE [Concomitant]
  3. IMURAN [Concomitant]
  4. FLAXSEED OIL [Concomitant]
  5. ESTRADIOL [Concomitant]
  6. CIMZIA [Suspect]
     Indication: CROHN'S DISEASE
     Dosage: SEE IMAGE
     Route: 058
     Dates: start: 20090514
  7. SULFASALAZINE [Concomitant]

REACTIONS (4)
  - WHITE BLOOD CELL COUNT INCREASED [None]
  - NEUTROPHIL COUNT INCREASED [None]
  - PREMATURE LABOUR [None]
  - DRUG EXPOSURE DURING PREGNANCY [None]
